FAERS Safety Report 11097205 (Version 1)
Quarter: 2015Q2

REPORT INFORMATION
  Report Type: Spontaneous
  Country: US (occurrence: None)
  Receive Date: 20150506
  Receipt Date: 20150506
  Transmission Date: 20150821
  Serious: Yes (Other)
  Sender: FDA-Public Use
  Company Number: None

PATIENT
  Age: 26 Year
  Sex: Female

DRUGS (1)
  1. LUPRON DEPOT [Suspect]
     Active Substance: LEUPROLIDE ACETATE
     Indication: ENDOMETRIOSIS
     Dosage: Q 3 MONTHS
     Route: 030
     Dates: start: 201502

REACTIONS (3)
  - Depression [None]
  - Anxiety [None]
  - Impaired work ability [None]

NARRATIVE: CASE EVENT DATE: 201502
